FAERS Safety Report 23648023 (Version 1)
Quarter: 2024Q1

REPORT INFORMATION
  Report Type: Spontaneous
  Country: IT (occurrence: IT)
  Receive Date: 20240319
  Receipt Date: 20240319
  Transmission Date: 20240410
  Serious: Yes (Other)
  Sender: FDA-Public Use
  Company Number: None

PATIENT
  Age: 61 Year
  Sex: Male

DRUGS (3)
  1. OXALIPLATIN [Suspect]
     Active Substance: OXALIPLATIN
     Indication: Gastric cancer
     Dosage: INIZIO TERAPIA 24/05/2023 - TERAPIA OGNI 14 GIORNI - 8 CICLO
     Route: 042
     Dates: start: 20230901, end: 20230901
  2. FLUOROURACIL [Suspect]
     Active Substance: FLUOROURACIL
     Indication: Gastric cancer
     Dosage: START OF THERAPY 05/24/2023 - THERAPY EVERY 14 DAYS - THERAPY VIA BOLUS INFUSION.?DRUG ALSO ADMIN...
     Route: 042
     Dates: start: 20230901, end: 20230901
  3. LEVOLEUCOVORIN [Concomitant]
     Active Substance: LEVOLEUCOVORIN
     Indication: Product used for unknown indication
     Route: 065

REACTIONS (1)
  - Neuropathy peripheral [Recovering/Resolving]

NARRATIVE: CASE EVENT DATE: 20230901
